FAERS Safety Report 13612798 (Version 1)
Quarter: 2017Q2

REPORT INFORMATION
  Report Type: Spontaneous
  Country: US (occurrence: US)
  Receive Date: 20170605
  Receipt Date: 20170605
  Transmission Date: 20170830
  Serious: No
  Sender: FDA-Public Use
  Company Number: US-ALLERGAN-1714582US

PATIENT
  Age: 58 Year
  Sex: Female

DRUGS (2)
  1. VITAMINS                           /00067501/ [Concomitant]
     Active Substance: VITAMINS
     Indication: SUPPLEMENTATION THERAPY
     Dosage: UNK
     Route: 048
  2. KYBELLA [Suspect]
     Active Substance: DEOXYCHOLIC ACID
     Indication: FAT TISSUE INCREASED
     Dosage: 2 VIALS SINGLE
     Route: 058
     Dates: start: 20170331, end: 20170331

REACTIONS (5)
  - Skin burning sensation [Recovering/Resolving]
  - Papule [Recovering/Resolving]
  - Rash erythematous [Recovering/Resolving]
  - Injection site swelling [Not Recovered/Not Resolved]
  - Erythema [Recovering/Resolving]

NARRATIVE: CASE EVENT DATE: 20170331
